FAERS Safety Report 5717377-7 (Version None)
Quarter: 2008Q2

REPORT INFORMATION
  Report Type: 
  Country: None (occurrence: None)
  Receive Date: 20080424
  Receipt Date: 20080424
  Transmission Date: 20081010
  Serious: Yes (Hospitalization)
  Sender: FDA-Public Use
  Company Number: None

PATIENT
  Age: 41 Year
  Sex: Female

DRUGS (1)
  1. REMICADE [Suspect]
     Indication: CROHN'S DISEASE
     Dosage: 10 MG/KG EVERY 6 WEEKS IV
     Route: 042

REACTIONS (6)
  - ARTHRALGIA [None]
  - ASTHENIA [None]
  - INFLUENZA LIKE ILLNESS [None]
  - NAUSEA [None]
  - SERUM SICKNESS [None]
  - VOMITING [None]
